FAERS Safety Report 8539424-X (Version None)
Quarter: 2012Q3

REPORT INFORMATION
  Report Type: 
  Country: None (occurrence: None)
  Receive Date: 20120726
  Receipt Date: 20120712
  Transmission Date: 20120928
  Serious: No
  Sender: FDA-Public Use
  Company Number: US-009507513-1207USA003435

PATIENT

DRUGS (3)
  1. ASPIRIN [Concomitant]
     Dosage: UNK, UNKNOWN
  2. INTEGRILIN [Suspect]
     Indication: PERCUTANEOUS CORONARY INTERVENTION
     Dosage: UNK, UNKNOWN
     Route: 042
  3. HEPARIN [Concomitant]
     Dosage: UNK, UNKNOWN

REACTIONS (1)
  - HAEMORRHAGE [None]
